FAERS Safety Report 4296567-7 (Version None)
Quarter: 2004Q1

REPORT INFORMATION
  Report Type: 
  Country: None (occurrence: None)
  Receive Date: 20040217
  Receipt Date: 20031119
  Transmission Date: 20041129
  Serious: Yes (Hospitalization, Other)
  Sender: FDA-Public Use
  Company Number: US-GLAXOSMITHKLINE-A0440367A

PATIENT
  Age: 46 Year
  Sex: Female
  Weight: 70.5 kg

DRUGS (7)
  1. LOTRONEX [Suspect]
     Indication: IRRITABLE BOWEL SYNDROME
     Dosage: 1MG TWICE PER DAY
     Route: 048
     Dates: start: 20030801, end: 20031105
  2. PAXIL CR [Concomitant]
  3. XANAX [Concomitant]
  4. PROPRANOLOL [Concomitant]
     Indication: MIGRAINE
  5. COZAAR [Concomitant]
  6. ASPIRIN [Concomitant]
  7. LOMOTIL [Concomitant]

REACTIONS (7)
  - ABDOMINAL PAIN [None]
  - ALANINE AMINOTRANSFERASE INCREASED [None]
  - APPENDICITIS [None]
  - ASPARTATE AMINOTRANSFERASE INCREASED [None]
  - GAMMA-GLUTAMYLTRANSFERASE INCREASED [None]
  - HEPATIC ENZYME INCREASED [None]
  - PYELONEPHRITIS [None]
